FAERS Safety Report 7963394-6 (Version None)
Quarter: 2011Q4

REPORT INFORMATION
  Report Type: 
  Country: None (occurrence: None)
  Receive Date: 20111205
  Receipt Date: 20111118
  Transmission Date: 20120403
  Serious: Yes (Hospitalization)
  Sender: FDA-Public Use
  Company Number: 2011110064

PATIENT
  Age: 27 Year
  Sex: Female
  Weight: 67 kg

DRUGS (2)
  1. SALAZOSULPHAPYRIDINE [Suspect]
     Indication: DIARRHOEA
     Dosage: 1000 MG (500 MG, 2 IN 1 D)
  2. MESALAMINE [Suspect]
     Indication: COLITIS ULCERATIVE
     Dosage: 1500 MG, DAILY

REACTIONS (2)
  - PLEURISY [None]
  - LYMPHOCYTE STIMULATION TEST POSITIVE [None]
